FAERS Safety Report 7385507-X (Version None)
Quarter: 2011Q1

REPORT INFORMATION
  Report Type: 
  Country: None (occurrence: None)
  Receive Date: 20110331
  Receipt Date: 20110328
  Transmission Date: 20110831
  Serious: Yes (Death, Hospitalization, Other)
  Sender: FDA-Public Use
  Company Number: US-ASTRAZENECA-2011SE17714

PATIENT
  Age: 73 Year
  Sex: Female

DRUGS (18)
  1. LACTULOSE [Concomitant]
     Dosage: THREE TABLESPOON THREE TIMES DAILY
     Dates: start: 20040417
  2. ALTACE [Concomitant]
     Dates: start: 20041224
  3. TEGRETOL/TEGRETOL XR [Concomitant]
     Dates: start: 20041201
  4. NAVANE [Concomitant]
     Dosage: 10 TO 40 MG
     Route: 048
     Dates: start: 19981001
  5. COREG [Concomitant]
     Dates: start: 20041224
  6. SYNTHROID [Concomitant]
     Dosage: 25 MCG TO 50 MCG
     Dates: start: 20040417
  7. COGENTIN [Concomitant]
     Route: 048
     Dates: start: 19981204
  8. DIGOXIN [Concomitant]
     Dosage: 0.25 MG TUESDAY AND WEDNESDAY AND REST 0.125
     Dates: start: 20041224
  9. ALLEGRA [Concomitant]
     Dates: start: 20041224
  10. ZANTAC [Concomitant]
     Dates: start: 20041224
  11. LASIX [Concomitant]
     Dosage: 20 MG TO 40 MG
  12. CALOR CL [Concomitant]
     Dosage: 20 Q DAILY
  13. DIGOXIN [Concomitant]
     Dosage: 0.25 MG DAILY
     Dates: start: 20040417
  14. SEROQUEL [Suspect]
     Dosage: 50 MG TO 600 MG
     Route: 048
     Dates: start: 19981001
  15. PREVACID [Concomitant]
     Dosage: 30 Q DAILY
     Dates: start: 20041224
  16. COUMADIN [Concomitant]
     Dosage: 3 MG TO AND EFFECTIVE INR OF 2 TO 3
     Dates: start: 20040417
  17. LOXITANE [Concomitant]
     Dosage: 20 TO 30 MG
     Route: 048
     Dates: start: 19990723
  18. TOPROL-XL [Concomitant]
     Dates: start: 20040417

REACTIONS (17)
  - PNEUMONIA [None]
  - HYPOTHYROIDISM [None]
  - DEMENTIA [None]
  - SCHIZOPHRENIA, PARANOID TYPE [None]
  - HEMIPARESIS [None]
  - URINARY TRACT INFECTION [None]
  - MOVEMENT DISORDER [None]
  - DELUSION [None]
  - TRANSIENT ISCHAEMIC ATTACK [None]
  - HEPATIC CIRRHOSIS [None]
  - RASH [None]
  - PARKINSONIAN GAIT [None]
  - CARDIAC FAILURE CONGESTIVE [None]
  - DIABETES MELLITUS [None]
  - HEPATIC ENCEPHALOPATHY [None]
  - CEREBROVASCULAR ACCIDENT [None]
  - HYPOZINCAEMIA [None]
